FAERS Safety Report 13972488 (Version 1)
Quarter: 2017Q3

REPORT INFORMATION
  Report Type: Spontaneous
  Country: US (occurrence: US)
  Receive Date: 20170915
  Receipt Date: 20170915
  Transmission Date: 20171128
  Serious: Yes (Hospitalization, Other)
  Sender: FDA-Public Use
  Company Number: US-HORIZON-PRE-0311-2017

PATIENT
  Age: 24 Year
  Sex: Female

DRUGS (3)
  1. CICLOSPORIN [Suspect]
     Active Substance: CYCLOSPORINE
     Indication: CELL-MEDIATED CYTOTOXICITY
  2. PREDNISONE. [Suspect]
     Active Substance: PREDNISONE
     Indication: CELL-MEDIATED CYTOTOXICITY
  3. MYCOPHENOLATE MOFETIL. [Suspect]
     Active Substance: MYCOPHENOLATE MOFETIL
     Indication: CELL-MEDIATED CYTOTOXICITY

REACTIONS (3)
  - Drug intolerance [Unknown]
  - Acute kidney injury [Unknown]
  - Diabetes mellitus [Unknown]
